FAERS Safety Report 21914442 (Version 1)
Quarter: 2023Q1

REPORT INFORMATION
  Report Type: Other
  Country: GB (occurrence: None)
  Receive Date: 20230126
  Receipt Date: 20230126
  Transmission Date: 20230418
  Serious: Yes (Hospitalization)
  Sender: FDA-Public Use
  Company Number: GB-ROCHE-2886543

PATIENT
  Sex: Female

DRUGS (6)
  1. TOCILIZUMAB [Suspect]
     Active Substance: TOCILIZUMAB
     Indication: Rheumatoid arthritis
     Route: 058
     Dates: start: 2022, end: 20220912
  2. PREDNISOLONE [Concomitant]
     Active Substance: PREDNISOLONE
     Route: 065
  3. INSULIN NOS [Concomitant]
     Active Substance: INSULIN NOS
     Route: 065
  4. SODIUM [Concomitant]
     Active Substance: SODIUM
     Route: 065
  5. POTASSIUM [Concomitant]
     Active Substance: POTASSIUM
     Route: 065
  6. MORPHINE [Concomitant]
     Active Substance: MORPHINE

REACTIONS (3)
  - Blood disorder [Unknown]
  - Ill-defined disorder [Unknown]
  - Abdominal pain upper [Unknown]
